FAERS Safety Report 4895655-1 (Version None)
Quarter: 2006Q1

REPORT INFORMATION
  Report Type: 
  Country: None (occurrence: None)
  Receive Date: 20060125
  Receipt Date: 20060120
  Transmission Date: 20060701
  Serious: Yes (Other)
  Sender: FDA-Public Use
  Company Number: 006454

PATIENT
  Age: 33 Year
  Sex: Female

DRUGS (2)
  1. SEASONALE [Suspect]
     Indication: ORAL CONTRACEPTION
     Dosage: 1 TABLET, QD, ORAL
     Route: 048
     Dates: start: 20060108, end: 20060116
  2. FLONASE [Concomitant]

REACTIONS (4)
  - HYPERHIDROSIS [None]
  - HYPERTENSION [None]
  - NERVOUSNESS [None]
  - RENAL ARTERY STENOSIS [None]
